FAERS Safety Report 14352027 (Version 6)
Quarter: 2018Q1

REPORT INFORMATION
  Report Type: Spontaneous
  Country: US (occurrence: US)
  Receive Date: 20180104
  Receipt Date: 20180315
  Transmission Date: 20180509
  Serious: Yes (Death, Hospitalization, Other)
  Sender: FDA-Public Use
  Company Number: US-PFIZER INC-2017552011

PATIENT
  Age: 91 Year
  Sex: Female
  Weight: 75 kg

DRUGS (3)
  1. IBRANCE [Suspect]
     Active Substance: PALBOCICLIB
     Indication: BREAST CANCER METASTATIC
     Dosage: 75 MG, CYCLIC [D1-21 Q28 DAYS]
     Route: 048
     Dates: start: 20171218
  2. IBRANCE [Suspect]
     Active Substance: PALBOCICLIB
     Dosage: 75 MG, CYCLIC (D 1-21 Q 28 DAYS)
     Route: 048
     Dates: start: 20171218
  3. IBRANCE [Suspect]
     Active Substance: PALBOCICLIB
     Dosage: 75 MG, CYCLIC(DAYS 1-21 Q 28 DAYS)
     Route: 048
     Dates: start: 20171218, end: 20180308

REACTIONS (17)
  - Death [Fatal]
  - Cough [Not Recovered/Not Resolved]
  - White blood cell count decreased [Unknown]
  - Fatigue [Not Recovered/Not Resolved]
  - Peripheral swelling [Unknown]
  - Poor quality sleep [Unknown]
  - Red blood cell count decreased [Unknown]
  - Haemoglobin decreased [Unknown]
  - Condition aggravated [Unknown]
  - Dyspnoea exertional [Unknown]
  - Somnolence [Unknown]
  - Insomnia [Unknown]
  - Epistaxis [Unknown]
  - Sleep talking [Unknown]
  - Productive cough [Unknown]
  - Decreased appetite [Not Recovered/Not Resolved]
  - Gait disturbance [Unknown]

NARRATIVE: CASE EVENT DATE: 201712
